FAERS Safety Report 8528612-4 (Version None)
Quarter: 2012Q3

REPORT INFORMATION
  Report Type: 
  Country: None (occurrence: None)
  Receive Date: 20120723
  Receipt Date: 20120710
  Transmission Date: 20120928
  Serious: No
  Sender: FDA-Public Use
  Company Number: US-BIOGENIDEC-2012BI016775

PATIENT
  Sex: Female

DRUGS (1)
  1. TYSABRI [Suspect]
     Indication: MULTIPLE SCLEROSIS
     Route: 042
     Dates: start: 20111115, end: 20120220

REACTIONS (5)
  - BALANCE DISORDER [None]
  - ANAPHYLACTIC REACTION [None]
  - INFUSION RELATED REACTION [None]
  - HYPOAESTHESIA [None]
  - ADVERSE REACTION [None]
